FAERS Safety Report 10182485 (Version 7)
Quarter: 2015Q1

REPORT INFORMATION
  Report Type: Report from Study
  Country: US (occurrence: US)
  Receive Date: 20140520
  Receipt Date: 20150311
  Transmission Date: 20150720
  Serious: Yes (Death, Hospitalization, Other)
  Sender: FDA-Public Use
  Company Number: US-ALEXION PHARMACEUTICALS INC.-A201401804

PATIENT

DRUGS (15)
  1. SOLIRIS [Suspect]
     Active Substance: ECULIZUMAB
     Indication: HAEMOLYTIC URAEMIC SYNDROME
     Dosage: 1200 MG, Q2W
     Route: 042
     Dates: start: 20131120
  2. SOLIRIS [Suspect]
     Active Substance: ECULIZUMAB
     Dosage: UNK
     Route: 042
     Dates: end: 20140603
  3. CELLCEPT [Concomitant]
     Active Substance: MYCOPHENOLATE MOFETIL\MYCOPHENOLATE MOFETIL HYDROCHLORIDE
     Indication: IMMUNOSUPPRESSANT DRUG THERAPY
     Dosage: UNK
     Route: 065
     Dates: start: 20131101
  4. ACYCLOVIR                          /00587301/ [Concomitant]
     Active Substance: ACYCLOVIR
     Indication: PRODUCT USED FOR UNKNOWN INDICATION
     Route: 065
  5. HYDROCODONE [Suspect]
     Active Substance: HYDROCODONE
     Indication: PRODUCT USED FOR UNKNOWN INDICATION
     Route: 065
  6. PREDNISONE. [Concomitant]
     Active Substance: PREDNISONE
     Indication: IMMUNOSUPPRESSANT DRUG THERAPY
     Dosage: UNK
     Route: 065
     Dates: start: 20131101
  7. REGLAN [Concomitant]
     Active Substance: METOCLOPRAMIDE HYDROCHLORIDE
     Indication: PRODUCT USED FOR UNKNOWN INDICATION
     Dosage: UNK
     Route: 065
     Dates: start: 20131101
  8. ASA [Concomitant]
     Active Substance: ASPIRIN
     Indication: ANTICOAGULANT THERAPY
     Dosage: UNK
     Route: 065
     Dates: start: 20131101
  9. COPPER [Concomitant]
     Active Substance: COPPER
     Indication: PRODUCT USED FOR UNKNOWN INDICATION
     Dosage: UNK
     Route: 065
     Dates: start: 20131101
  10. CYCLOSPORIN [Concomitant]
     Active Substance: CYCLOSPORINE
     Indication: IMMUNOSUPPRESSANT DRUG THERAPY
     Dosage: UNK
     Route: 065
     Dates: start: 20131101
  11. FOLIC ACID. [Concomitant]
     Active Substance: FOLIC ACID
     Indication: PRODUCT USED FOR UNKNOWN INDICATION
     Dosage: UNK
     Route: 065
     Dates: start: 20131101
  12. IRON COMPOUND [Concomitant]
     Indication: MINERAL SUPPLEMENTATION
     Dosage: UNK
     Route: 065
     Dates: start: 20131101
  13. COUMADIN [Concomitant]
     Active Substance: WARFARIN SODIUM
     Indication: ANTICOAGULANT THERAPY
     Dosage: UNK
     Route: 065
     Dates: start: 20131101
  14. MAGNESIUM [Concomitant]
     Active Substance: MAGNESIUM
     Indication: PRODUCT USED FOR UNKNOWN INDICATION
     Dosage: UNK
     Route: 065
     Dates: start: 20131101
  15. SODIUM BICARBONATE. [Concomitant]
     Active Substance: SODIUM BICARBONATE
     Indication: PRODUCT USED FOR UNKNOWN INDICATION
     Dosage: UNK
     Route: 065
     Dates: start: 20131101

REACTIONS (22)
  - Urosepsis [Not Recovered/Not Resolved]
  - Hypotension [Not Recovered/Not Resolved]
  - Urine output decreased [Unknown]
  - Pulmonary congestion [Unknown]
  - Unresponsive to stimuli [Unknown]
  - Sinus disorder [Unknown]
  - Mental status changes [Not Recovered/Not Resolved]
  - Aortic arteriosclerosis [Unknown]
  - White blood cell count increased [Unknown]
  - Bacteraemia [Not Recovered/Not Resolved]
  - Platelet count decreased [Unknown]
  - Pelvic fracture [Unknown]
  - West Nile viral infection [Unknown]
  - Death [Fatal]
  - Enterococcal infection [Unknown]
  - Hearing impaired [Unknown]
  - Blood urine present [Unknown]
  - Confusional state [Recovering/Resolving]
  - Lethargy [Not Recovered/Not Resolved]
  - Blood blister [Unknown]
  - Haemoglobin decreased [Unknown]
  - Intervertebral disc degeneration [Unknown]

NARRATIVE: CASE EVENT DATE: 20140505
